FAERS Safety Report 12996004 (Version 5)
Quarter: 2017Q1

REPORT INFORMATION
  Report Type: Spontaneous
  Country: US (occurrence: US)
  Receive Date: 20161202
  Receipt Date: 20170323
  Transmission Date: 20170428
  Serious: Yes (Hospitalization, Other)
  Sender: FDA-Public Use
  Company Number: US-SAOL THERAPEUTICS-2016SAO01156

PATIENT
  Age: 61 Year
  Sex: Male
  Weight: 73.16 kg

DRUGS (24)
  1. BISACODYL. [Concomitant]
     Active Substance: BISACODYL
  2. MIRALAX [Concomitant]
     Active Substance: POLYETHYLENE GLYCOL 3350
  3. SENNA [Concomitant]
     Active Substance: SENNA LEAF\SENNOSIDES\SENNOSIDES A AND B
  4. CALCIUM CARBONATE. [Concomitant]
     Active Substance: CALCIUM CARBONATE
  5. BACLOFEN. [Suspect]
     Active Substance: BACLOFEN
     Route: 048
  6. CITALOPRAM [Concomitant]
     Active Substance: CITALOPRAM HYDROBROMIDE
  7. DIAZEPAM. [Concomitant]
     Active Substance: DIAZEPAM
  8. BACLOFEN. [Suspect]
     Active Substance: BACLOFEN
     Indication: MULTIPLE SCLEROSIS
     Dosage: 3 ?G, \DAY
     Route: 037
     Dates: end: 20161126
  9. ACETAMINOPHEN. [Concomitant]
     Active Substance: ACETAMINOPHEN
  10. TAMSULOSIN [Concomitant]
     Active Substance: TAMSULOSIN
  11. BACLOFEN. [Suspect]
     Active Substance: BACLOFEN
     Dosage: 3.1 ?G, \DAY
     Route: 037
     Dates: start: 20161127
  12. LABETALOL [Concomitant]
     Active Substance: LABETALOL\LABETALOL HYDROCHLORIDE
     Dosage: UNK, AS NEEDED
  13. OXYCODONE [Concomitant]
     Active Substance: OXYCODONE
  14. DOCUSATE [Concomitant]
     Active Substance: DOCUSATE
  15. BACLOFEN. [Suspect]
     Active Substance: BACLOFEN
     Indication: MUSCLE SPASTICITY
     Dosage: 50 ?G, \DAY
     Route: 037
     Dates: start: 20161114
  16. BACLOFEN. [Suspect]
     Active Substance: BACLOFEN
     Dosage: 5000 ?G, \DAY
     Route: 037
     Dates: start: 20161126, end: 20161127
  17. HEPARIN [Concomitant]
     Active Substance: HEPARIN SODIUM
     Route: 058
  18. LORAZEPAM. [Concomitant]
     Active Substance: LORAZEPAM
  19. AMITRIPTYLINE [Concomitant]
     Active Substance: AMITRIPTYLINE
  20. FLUTICASONE. [Concomitant]
     Active Substance: FLUTICASONE
  21. GABAPENTIN. [Concomitant]
     Active Substance: GABAPENTIN
  22. HYDRALAZINE [Concomitant]
     Active Substance: HYDRALAZINE HYDROCHLORIDE
     Dosage: UNK, AS NEEDED
  23. ONDANSETRON [Concomitant]
     Active Substance: ONDANSETRON
  24. ZOLPIDEM [Concomitant]
     Active Substance: ZOLPIDEM\ZOLPIDEM TARTRATE
     Dosage: UNK, AS NEEDED

REACTIONS (8)
  - Overdose [Recovered/Resolved]
  - Asthenia [Recovered/Resolved]
  - Unresponsive to stimuli [Recovered/Resolved]
  - Oxygen saturation decreased [Recovered/Resolved]
  - Incorrect dose administered [Recovered/Resolved]
  - Somnolence [Recovered/Resolved]
  - Sedation [Recovered/Resolved]
  - Obstructive airways disorder [Recovered/Resolved]

NARRATIVE: CASE EVENT DATE: 201611
